FAERS Safety Report 5180963-X (Version None)
Quarter: 2006Q4

REPORT INFORMATION
  Report Type: 
  Country: None (occurrence: None)
  Receive Date: 20061220
  Receipt Date: 20061211
  Transmission Date: 20070319
  Serious: Yes (Other)
  Sender: FDA-Public Use
  Company Number: ES-JNJFOC-20061203046

PATIENT
  Age: 50 Year
  Sex: Male

DRUGS (3)
  1. REMICADE [Suspect]
     Indication: ANKYLOSING SPONDYLITIS
     Route: 042
  2. STEROIDS [Concomitant]
     Dosage: LOW DOSE
     Route: 065
  3. NSAIDS [Concomitant]
     Route: 065

REACTIONS (1)
  - MALIGNANT MELANOMA [None]
